FAERS Safety Report 17730653 (Version 1)
Quarter: 2020Q2

REPORT INFORMATION
  Report Type: Other
  Country: NO (occurrence: NO)
  Receive Date: 20200430
  Receipt Date: 20200430
  Transmission Date: 20200714
  Serious: Yes (Other)
  Sender: FDA-Public Use
  Company Number: NO-EMD SERONO-9159185

PATIENT

DRUGS (2)
  1. CLADRIBINE. [Suspect]
     Active Substance: CLADRIBINE
     Indication: MULTIPLE SCLEROSIS
     Dosage: FIRST TREATMENT COURSE
  2. CLADRIBINE. [Suspect]
     Active Substance: CLADRIBINE
     Dosage: SECOND TREATMENT COURSE

REACTIONS (1)
  - Meningomyelitis herpes [Unknown]
